FAERS Safety Report 8819274 (Version 1)
Quarter: 2012Q4

REPORT INFORMATION
  Report Type: Spontaneous
  Country: BE (occurrence: None)
  Receive Date: 20121003
  Receipt Date: 20121003
  Transmission Date: 20130627
  Serious: Yes (Disabling)
  Sender: FDA-Public Use
  Company Number: DSA_59903_2012

PATIENT
  Age: 28 Year
  Sex: Female

DRUGS (4)
  1. WELLBUTRIN [Suspect]
     Indication: MEMORY IMPAIRMENT
     Route: 048
     Dates: start: 201106, end: 2011
  2. WELLBUTRIN [Suspect]
     Indication: MEMORY IMPAIRMENT
     Route: 048
     Dates: start: 20111001, end: 20111231
  3. BUPROPION HYDROCHLORIDE [Concomitant]
  4. BUPROPION HYDROCHLORIDE [Concomitant]

REACTIONS (1)
  - Memory impairment [None]
